FAERS Safety Report 15036469 (Version 1)
Quarter: 2018Q2

REPORT INFORMATION
  Report Type: Spontaneous
  Country: US (occurrence: US)
  Receive Date: 20180530
  Receipt Date: 20180530
  Transmission Date: 20180711
  Serious: No
  Sender: FDA-Public Use
  Company Number: None

PATIENT
  Age: 62 Year
  Sex: Female

DRUGS (3)
  1. POTASSIUM [Concomitant]
     Active Substance: POTASSIUM
  2. XALKORI [Suspect]
     Active Substance: CRIZOTINIB
  3. FUROSEMIDE. [Concomitant]
     Active Substance: FUROSEMIDE

REACTIONS (3)
  - Peripheral swelling [None]
  - Joint swelling [None]
  - Paraesthesia [None]

NARRATIVE: CASE EVENT DATE: 20180521
